FAERS Safety Report 15651116 (Version 1)
Quarter: 2018Q4

REPORT INFORMATION
  Report Type: Spontaneous
  Country: US (occurrence: US)
  Receive Date: 20181123
  Receipt Date: 20181123
  Transmission Date: 20190205
  Serious: Yes (Other)
  Sender: FDA-Public Use
  Company Number: US-009507513-1811USA008314

PATIENT
  Age: 79 Year
  Sex: Male

DRUGS (11)
  1. KEYTRUDA [Suspect]
     Active Substance: PEMBROLIZUMAB
     Indication: NON-SMALL CELL LUNG CANCER METASTATIC
     Dosage: 200 MILLIGRAM, EVERY 3 WEEKS
     Route: 042
     Dates: start: 201709, end: 201801
  2. METFORMIN [Concomitant]
     Active Substance: METFORMIN HYDROCHLORIDE
     Dosage: UNK
  3. LOSARTAN. [Concomitant]
     Active Substance: LOSARTAN
  4. EFFIENT [Concomitant]
     Active Substance: PRASUGREL HYDROCHLORIDE
     Dosage: UNK
  5. PANTOPRAZOLE [Concomitant]
     Active Substance: PANTOPRAZOLE
     Dosage: UNK
  6. ASPIRIN. [Concomitant]
     Active Substance: ASPIRIN
     Dosage: UNK
  7. DILTIAZEM ER [Concomitant]
     Active Substance: DILTIAZEM
     Dosage: UNK
  8. ROSUVASTATIN. [Concomitant]
     Active Substance: ROSUVASTATIN
     Dosage: UNK
  9. VALSARTAN. [Concomitant]
     Active Substance: VALSARTAN
     Dosage: UNK
  10. EZETIMIB [Concomitant]
     Active Substance: EZETIMIBE
     Dosage: UNK
  11. GLIMEPIRIDE. [Concomitant]
     Active Substance: GLIMEPIRIDE
     Dosage: UNK

REACTIONS (3)
  - Adrenal insufficiency [Recovered/Resolved]
  - Neuralgia [Not Recovered/Not Resolved]
  - White blood cell count increased [Unknown]

NARRATIVE: CASE EVENT DATE: 201801
